FAERS Safety Report 4334336-X (Version None)
Quarter: 2004Q2

REPORT INFORMATION
  Report Type: 
  Country: None (occurrence: None)
  Receive Date: 20040405
  Receipt Date: 20040325
  Transmission Date: 20050107
  Serious: Yes (Death)
  Sender: FDA-Public Use
  Company Number: D01200401023

PATIENT
  Age: 83 Year
  Sex: Female

DRUGS (15)
  1. (OXALIPLATIN) - SOLUTION - 85 MG/M2 [Suspect]
     Dosage: 85 MG/M2 Q2W; INTRAVENOUS NOS
     Route: 042
     Dates: start: 20040317, end: 20040317
  2. FLUOROURACIL [Suspect]
     Dosage: 400 MG/M2 AS IV BOLUS THAN 600 MG/M2 AS 22 HOURS CONTINUOUS INFUSION D1-D2 Q2W; INTRAVENOUS NOS
     Route: 042
     Dates: start: 20040317, end: 20040317
  3. (SR57746 OR PLACEBO) - CAPSULE - 1 MG [Suspect]
     Indication: NEUROTOXICITY
     Dosage: 1 MG QD
     Route: 048
     Dates: start: 20040317, end: 20040317
  4. LEUCOVORIN CALCIUM [Suspect]
     Dosage: 200 MG/M2 AS 2 HOURS INFUSION ON D1-D2 Q2W; INTRAVENOUS NOS
     Route: 042
     Dates: start: 20040317, end: 20040317
  5. GLUCOPHAGE [Concomitant]
  6. STABLON (TIANEPTINE) [Concomitant]
  7. ZESTORETIC [Concomitant]
  8. ELIXA [Concomitant]
  9. POTASSIUM CHLORIDE [Concomitant]
  10. AMARYL [Concomitant]
  11. ALPRESS (PRAZOSIN HYDROCHLORIDE) [Concomitant]
  12. AMLODIPINE BESYLATE [Concomitant]
  13. DEROXATE (PAROXETINE HYDROCHLORIDE) [Concomitant]
  14. ZOLPIDEM TARTRATE [Concomitant]
  15. ASPIRIN [Concomitant]

REACTIONS (1)
  - SUDDEN DEATH [None]
